FAERS Safety Report 9271756 (Version 1)
Quarter: 2013Q2

REPORT INFORMATION
  Report Type: Spontaneous
  Country: CN (occurrence: CN)
  Receive Date: 20130506
  Receipt Date: 20130506
  Transmission Date: 20140414
  Serious: Yes (Life-Threatening, Hospitalization)
  Sender: FDA-Public Use
  Company Number: CN-GE HEALTHCARE MEDICAL DIAGNOSTICS-VISP-NO-1304S-0597

PATIENT
  Age: 37 Year
  Sex: Male
  Weight: 7 kg

DRUGS (3)
  1. VISIPAQUE [Suspect]
     Indication: PRODUCT USED FOR UNKNOWN INDICATION
     Route: 042
     Dates: start: 20130403, end: 20130403
  2. VISIPAQUE [Suspect]
     Indication: DIAGNOSTIC PROCEDURE
  3. ANTIBIOTICS UNSPECIFIED [Concomitant]

REACTIONS (2)
  - Cyanosis [Recovered/Resolved]
  - Cardio-respiratory arrest [Recovered/Resolved]
